FAERS Safety Report 14151194 (Version 2)
Quarter: 2017Q4

REPORT INFORMATION
  Report Type: Report from Study
  Country: None (occurrence: IL)
  Receive Date: 20171102
  Receipt Date: 20171104
  Transmission Date: 20180321
  Serious: Yes (Hospitalization)
  Sender: FDA-Public Use
  Company Number: IL-ABBVIE-17K-082-2142536-00

PATIENT
  Sex: Male

DRUGS (3)
  1. DUODOPA [Suspect]
     Active Substance: CARBIDOPA\LEVODOPA
     Dosage: CONTINUOUS DOSE 0.2.
     Route: 050
     Dates: start: 2017
  2. DUODOPA [Suspect]
     Active Substance: CARBIDOPA\LEVODOPA
     Indication: PARKINSON^S DISEASE
     Dosage: MORNING DOSE-10ML??CURRENT CONTINUES RATE-3ML/HOUR??CURRENT ED- 1ML
     Route: 050
     Dates: start: 20170828, end: 2017
  3. SINEMET [Concomitant]
     Active Substance: CARBIDOPA\LEVODOPA
     Indication: PRODUCT USED FOR UNKNOWN INDICATION
     Dosage: 1 PILL

REACTIONS (4)
  - Restlessness [Recovering/Resolving]
  - Device dislocation [Recovered/Resolved]
  - Dyskinesia [Recovering/Resolving]
  - Lens dislocation [Recovering/Resolving]

NARRATIVE: CASE EVENT DATE: 2017
